FAERS Safety Report 21465995 (Version 1)
Quarter: 2022Q4

REPORT INFORMATION
  Report Type: Spontaneous
  Country: US (occurrence: None)
  Receive Date: 20221015
  Receipt Date: 20221015
  Transmission Date: 20230113
  Serious: Yes (Other)
  Sender: FDA-Public Use
  Company Number: None

PATIENT
  Age: 75 Year
  Sex: Female
  Weight: 78.75 kg

DRUGS (2)
  1. COLESTIPOL [Suspect]
     Active Substance: COLESTIPOL
     Indication: Diarrhoea
     Dosage: OTHER QUANTITY : 120 TABLET(S);?FREQUENCY : DAILY;?
     Route: 048
  2. PANTOPRAZOLE [Concomitant]
     Active Substance: PANTOPRAZOLE

REACTIONS (2)
  - Urticaria [None]
  - Rash [None]

NARRATIVE: CASE EVENT DATE: 20221006
